FAERS Safety Report 17361166 (Version 1)
Quarter: 2020Q1

REPORT INFORMATION
  Report Type: Spontaneous
  Country: US (occurrence: US)
  Receive Date: 20200117
  Receipt Date: 20200117
  Transmission Date: 20200409
  Serious: No
  Sender: FDA-Public Use
  Company Number: None

PATIENT

DRUGS (1)
  1. CLOBAZAM. [Suspect]
     Active Substance: CLOBAZAM

REACTIONS (3)
  - Product preparation error [None]
  - Wrong dose [None]
  - Incorrect dose administered [None]
